FAERS Safety Report 20826338 (Version 3)
Quarter: 2023Q1

REPORT INFORMATION
  Report Type: Spontaneous
  Country: AU (occurrence: AU)
  Receive Date: 20220513
  Receipt Date: 20230209
  Transmission Date: 20230418
  Serious: Yes (Other)
  Sender: FDA-Public Use
  Company Number: AU-PFIZER INC-202200657966

PATIENT
  Age: 6 Decade

DRUGS (6)
  1. SODIUM BICARBONATE [Suspect]
     Active Substance: SODIUM BICARBONATE
     Indication: Overdose
     Dosage: 1500 MMOL/L OVER 120 MINS
     Route: 040
  2. SODIUM BICARBONATE [Suspect]
     Active Substance: SODIUM BICARBONATE
     Indication: Toxicity to various agents
  3. METHYLENE BLUE [Concomitant]
     Active Substance: METHYLENE BLUE
     Indication: Hypotension
     Dosage: UNK
  4. VASOPRESSIN [Concomitant]
     Active Substance: VASOPRESSIN
     Indication: Hypotension
     Dosage: UNK
  5. INSULIN NOS [Concomitant]
     Active Substance: INSULIN NOS
     Indication: Diabetes mellitus
     Dosage: UNK, HIGH DOSE
  6. INTRALIPID [Concomitant]
     Active Substance: EGG PHOSPHOLIPIDS\GLYCERIN\SOYBEAN OIL
     Indication: Hypotension
     Dosage: UNK

REACTIONS (4)
  - Overdose [Unknown]
  - Toxicity to various agents [Unknown]
  - Hypokalaemia [Unknown]
  - Hypernatraemia [Unknown]
